FAERS Safety Report 7365567-2 (Version None)
Quarter: 2011Q1

REPORT INFORMATION
  Report Type: 
  Country: None (occurrence: None)
  Receive Date: 20110322
  Receipt Date: 20101109
  Transmission Date: 20110831
  Serious: Yes (Hospitalization, Other)
  Sender: FDA-Public Use
  Company Number: US-BAYER-201016351NA

PATIENT
  Sex: Female
  Weight: 82 kg

DRUGS (7)
  1. LOESTRIN FE 1/20 [Concomitant]
     Dosage: UNK
     Dates: start: 20070701, end: 20071020
  2. YAZ [Suspect]
     Indication: ORAL CONTRACEPTION
     Dosage: UNK UNK, QD
     Route: 048
     Dates: start: 20030101, end: 20080301
  3. YASMIN [Suspect]
     Dosage: UNK
     Dates: start: 20080201
  4. MACROBID [Concomitant]
  5. YASMIN [Suspect]
     Indication: ORAL CONTRACEPTION
     Dosage: UNK UNK, QD
     Route: 048
     Dates: start: 20030901, end: 20070813
  6. ALLEGRA [Concomitant]
     Indication: HYPERSENSITIVITY
     Dosage: UNK
     Dates: start: 20030101, end: 20070101
  7. YAZ [Suspect]
     Dosage: UNK
     Dates: start: 20071101, end: 20090101

REACTIONS (17)
  - VOMITING [None]
  - ABDOMINAL PAIN UPPER [None]
  - NAUSEA [None]
  - FAT INTOLERANCE [None]
  - MUSCULOSKELETAL PAIN [None]
  - GASTROOESOPHAGEAL REFLUX DISEASE [None]
  - GALLBLADDER CHOLESTEROLOSIS [None]
  - BACK PAIN [None]
  - DYSPEPSIA [None]
  - CYSTITIS BACTERIAL [None]
  - CHOLECYSTITIS CHRONIC [None]
  - BLOOD PRESSURE INCREASED [None]
  - IRRITABLE BOWEL SYNDROME [None]
  - PAIN [None]
  - GASTRITIS [None]
  - BILIARY DYSKINESIA [None]
  - FLATULENCE [None]
